FAERS Safety Report 24000609 (Version 1)
Quarter: 2024Q2

REPORT INFORMATION
  Report Type: Spontaneous
  Country: GB (occurrence: GB)
  Receive Date: 20240621
  Receipt Date: 20240621
  Transmission Date: 20240716
  Serious: Yes (Disabling, Other)
  Sender: FDA-Public Use
  Company Number: None

PATIENT
  Age: 53 Year
  Sex: Female
  Weight: 59 kg

DRUGS (2)
  1. VENLAFAXINE [Suspect]
     Active Substance: VENLAFAXINE HYDROCHLORIDE
     Indication: Product used for unknown indication
     Dosage: UNKNOWN
     Route: 065
  2. CLONAZEPAM [Concomitant]
     Active Substance: CLONAZEPAM
     Indication: Restless legs syndrome
     Dosage: UNKNOWN
     Route: 065
     Dates: start: 20230301

REACTIONS (6)
  - Syncope [Recovering/Resolving]
  - Electric shock sensation [Not Recovered/Not Resolved]
  - Dizziness [Unknown]
  - Shock [Unknown]
  - Condition aggravated [Unknown]
  - Electrocardiogram [Unknown]

NARRATIVE: CASE EVENT DATE: 20231201
